FAERS Safety Report 16993490 (Version 3)
Quarter: 2020Q4

REPORT INFORMATION
  Report Type: Spontaneous
  Country: US (occurrence: US)
  Receive Date: 20191105
  Receipt Date: 20201217
  Transmission Date: 20210113
  Serious: No
  Sender: FDA-Public Use
  Company Number: US-BIOGEN-2019BI00724724

PATIENT
  Sex: Female

DRUGS (1)
  1. TECFIDERA [Suspect]
     Active Substance: DIMETHYL FUMARATE
     Indication: MULTIPLE SCLEROSIS
     Route: 048

REACTIONS (6)
  - Headache [Unknown]
  - Multiple sclerosis [Unknown]
  - Flushing [Unknown]
  - Rash pruritic [Unknown]
  - Hot flush [Unknown]
  - Carpal tunnel syndrome [Unknown]
